FAERS Safety Report 16694550 (Version 2)
Quarter: 2019Q3

REPORT INFORMATION
  Report Type: Report from Study
  Country: US (occurrence: US)
  Receive Date: 20190812
  Receipt Date: 20190918
  Transmission Date: 20191004
  Serious: Yes (Other)
  Sender: FDA-Public Use
  Company Number: US-EISAI MEDICAL RESEARCH-EC-2019-060408

PATIENT
  Sex: Male
  Weight: 109 kg

DRUGS (6)
  1. LENVIMA [Suspect]
     Active Substance: LENVATINIB
     Indication: RENAL CANCER
     Dosage: DAILY FOR 21 DAYS ON, THEN 7 DAYS OFF
     Route: 048
     Dates: start: 20190606, end: 2019
  2. GABAPENTIN. [Concomitant]
     Active Substance: GABAPENTIN
  3. AFINITOR [Concomitant]
     Active Substance: EVEROLIMUS
  4. VITAMIN D2 [Concomitant]
     Active Substance: ERGOCALCIFEROL
  5. LOVENOX [Concomitant]
     Active Substance: ENOXAPARIN SODIUM
  6. ELIQUIS [Concomitant]
     Active Substance: APIXABAN

REACTIONS (5)
  - Asthenia [Unknown]
  - Drug ineffective [Unknown]
  - Fatigue [Unknown]
  - Decreased appetite [Unknown]
  - Pulmonary embolism [Unknown]

NARRATIVE: CASE EVENT DATE: 2019
